FAERS Safety Report 8348228-2 (Version None)
Quarter: 2012Q2

REPORT INFORMATION
  Report Type: 
  Country: None (occurrence: None)
  Receive Date: 20120509
  Receipt Date: 20120507
  Transmission Date: 20120825
  Serious: Yes (Hospitalization)
  Sender: FDA-Public Use
  Company Number: PHHY2012TR038694

PATIENT
  Age: 11 Year
  Sex: Male

DRUGS (1)
  1. ATOMOXETINE HCL [Suspect]
     Indication: ATTENTION DEFICIT/HYPERACTIVITY DISORDER
     Dosage: 10 MG/ DAY

REACTIONS (4)
  - PERIPHERAL COLDNESS [None]
  - HYPOTHERMIA [None]
  - FATIGUE [None]
  - FEELING COLD [None]
